FAERS Safety Report 6601518-3 (Version None)
Quarter: 2010Q1

REPORT INFORMATION
  Report Type: 
  Country: None (occurrence: None)
  Receive Date: 20100217
  Receipt Date: 20100125
  Transmission Date: 20100710
  Serious: No
  Sender: FDA-Public Use
  Company Number: B0628779A

PATIENT
  Age: 34 Year
  Sex: Female

DRUGS (2)
  1. CIPROFLOXACIN [Suspect]
     Indication: URINARY TRACT INFECTION
  2. CEFUROXIME [Suspect]
     Indication: URINARY TRACT INFECTION

REACTIONS (1)
  - TREATMENT FAILURE [None]
